FAERS Safety Report 7040081-2 (Version None)
Quarter: 2010Q4

REPORT INFORMATION
  Report Type: 
  Country: None (occurrence: None)
  Receive Date: 20101012
  Receipt Date: 20100929
  Transmission Date: 20110411
  Serious: Yes (Other)
  Sender: FDA-Public Use
  Company Number: PHHY2010RU67691

PATIENT

DRUGS (1)
  1. EXJADE [Suspect]
     Indication: THALASSAEMIA BETA

REACTIONS (1)
  - BLOOD GLUCOSE INCREASED [None]
